FAERS Safety Report 5465513-2 (Version None)
Quarter: 2007Q3

REPORT INFORMATION
  Report Type: 
  Country: None (occurrence: None)
  Receive Date: 20070924
  Receipt Date: 20000814
  Transmission Date: 20080115
  Serious: Yes (Hospitalization, Other)
  Sender: FDA-Public Use
  Company Number: ZA-PFIZER INC-2006083793

PATIENT
  Sex: Female

DRUGS (4)
  1. IRINOTECAN HCL [Suspect]
     Indication: COLON CANCER
     Route: 042
     Dates: start: 20000517, end: 20000719
  2. IRINOTECAN HCL [Suspect]
     Indication: METASTASES TO LIVER
  3. FLUOROURACIL [Concomitant]
     Dosage: FREQ:CYCLICALLY
     Dates: start: 20000328, end: 20000505
  4. LEUCOVORIN [Concomitant]
     Dosage: FREQ:CYCLICALLY
     Dates: start: 20000328, end: 20000505

REACTIONS (2)
  - CARDIAC FAILURE [None]
  - NEPHROTIC SYNDROME [None]
